FAERS Safety Report 12144458 (Version 4)
Quarter: 2016Q2

REPORT INFORMATION
  Report Type: Spontaneous
  Country: US (occurrence: US)
  Receive Date: 20160304
  Receipt Date: 20160421
  Transmission Date: 20160815
  Serious: No
  Sender: FDA-Public Use
  Company Number: US-PFIZER INC-2016136893

PATIENT
  Age: 60 Year
  Sex: Female

DRUGS (23)
  1. LYRICA [Suspect]
     Active Substance: PREGABALIN
     Indication: FIBROMYALGIA
     Dosage: 200 MG, 2X/DAY (200 MG IN THE AND 200 MG AT NIGHT)
     Dates: start: 201601
  2. LANSOPRAZOLE. [Concomitant]
     Active Substance: LANSOPRAZOLE
     Indication: ABDOMINAL DISCOMFORT
     Dosage: 30 MG, 2X/DAY (ONE IN MORNING AND AT NIGHT)
     Route: 048
     Dates: start: 20150203
  3. VALTREX [Concomitant]
     Active Substance: VALACYCLOVIR HYDROCHLORIDE
     Dosage: 1 G, 1X/DAY
     Route: 048
     Dates: start: 20140401
  4. SKELAXINE [Suspect]
     Active Substance: ACETAMINOPHEN\CHLORZOXAZONE
     Indication: MYALGIA
     Dosage: 800 MG, AS NEEDED (TID)
     Route: 048
     Dates: start: 20140314
  5. AMBIEN [Concomitant]
     Active Substance: ZOLPIDEM TARTRATE
     Indication: SLEEP DISORDER
     Dosage: 10 MG, AS NEEDED (ONCE AT NIGHT)
     Route: 048
     Dates: start: 20140902
  6. LYRICA [Suspect]
     Active Substance: PREGABALIN
     Indication: INTERVERTEBRAL DISC PROTRUSION
  7. CLONAZEPAM. [Concomitant]
     Active Substance: CLONAZEPAM
     Indication: PAIN
     Dosage: 0.5 MG, UNK
  8. PERCOCET [Concomitant]
     Active Substance: ACETAMINOPHEN\OXYCODONE HYDROCHLORIDE
     Dosage: UNK, AS NEEDED (OXYCODONE HYDROCHLORIDE, OXYCODONE TEREPHTHALATE, PARACETAMOL, 7.5/325)
     Route: 048
     Dates: start: 20131227
  9. CLONAZEPAM. [Concomitant]
     Active Substance: CLONAZEPAM
     Indication: NERVE INJURY
     Dosage: INCREADED TO 1 MG, 2X/DAY
  10. SUCRALFATE. [Concomitant]
     Active Substance: SUCRALFATE
     Indication: PROPHYLAXIS
     Dosage: 1 MG, 4X/DAY
     Dates: start: 201509
  11. ONDANSETRON [Concomitant]
     Active Substance: ONDANSETRON
     Indication: NAUSEA
     Dosage: 4MG ONE OR TWO TABLETS EVERY SIX HOURS AS NEEDED
     Dates: start: 201509
  12. CARAFATE [Concomitant]
     Active Substance: SUCRALFATE
     Dosage: 1 G, 4X/DAY
     Route: 048
     Dates: start: 20150314
  13. LYRICA [Suspect]
     Active Substance: PREGABALIN
     Indication: ARTHRALGIA
     Dosage: 150 MG, 2X/DAY
     Route: 048
     Dates: start: 20160303
  14. LYRICA [Suspect]
     Active Substance: PREGABALIN
     Indication: BACK PAIN
     Dosage: 75 MG, UNK
  15. LYRICA [Suspect]
     Active Substance: PREGABALIN
     Indication: SPINAL PAIN
  16. CLONAZEPAM. [Concomitant]
     Active Substance: CLONAZEPAM
     Dosage: AS NEEDED (1/2-1 TABLET 2X PER DAY AS NEEDED)
     Route: 048
     Dates: start: 20100527
  17. DULOXETINE. [Concomitant]
     Active Substance: DULOXETINE
     Indication: FIBROMYALGIA
     Dosage: 60 MG, 2X/DAY
  18. LYRICA [Suspect]
     Active Substance: PREGABALIN
     Indication: INFLAMMATION
     Dosage: 50 MG, UNK
  19. OXYCODONE [Concomitant]
     Active Substance: OXYCODONE
     Indication: PAIN
     Dosage: 7.5-325MG ONE TO THREE TIMES A DAY)
  20. VALACYCLOVIR [Concomitant]
     Active Substance: VALACYCLOVIR HYDROCHLORIDE
     Indication: HERPES VIRUS INFECTION
     Dosage: 1 G, UNK
  21. FISH OIL [Concomitant]
     Active Substance: FISH OIL
     Dosage: 1000 MG, DAILY
     Route: 048
     Dates: start: 20151113
  22. CYMBALTA [Concomitant]
     Active Substance: DULOXETINE HYDROCHLORIDE
     Dosage: 60 MG, DAILY
     Route: 048
     Dates: start: 20140925
  23. ONDANSETRON HCL [Concomitant]
     Active Substance: ONDANSETRON HYDROCHLORIDE
     Dosage: UNK, AS NEEDED (4 MG TABLET1 OR 2 (ONE OR TWO) TABLET EVERY 6 HOURS AS NEEDED)
     Route: 048
     Dates: start: 20150814

REACTIONS (7)
  - Dizziness [Recovered/Resolved]
  - Vomiting [Unknown]
  - Gastric disorder [Unknown]
  - Condition aggravated [Unknown]
  - Weight increased [Not Recovered/Not Resolved]
  - Intervertebral disc protrusion [Unknown]
  - Pain [Unknown]

NARRATIVE: CASE EVENT DATE: 201601
